FAERS Safety Report 6122584-8 (Version None)
Quarter: 2009Q1

REPORT INFORMATION
  Report Type: 
  Country: None (occurrence: None)
  Receive Date: 20090318
  Receipt Date: 20090312
  Transmission Date: 20090719
  Serious: Yes (Death)
  Sender: FDA-Public Use
  Company Number: US-BRISTOL-MYERS SQUIBB COMPANY-14545487

PATIENT
  Sex: Male

DRUGS (4)
  1. EFAVIRENZ [Suspect]
     Route: 048
  2. RALTEGRAVIR [Suspect]
     Dosage: RALTEGRAVIR POTASSIUM TABS
     Route: 048
  3. DARUNAVIR [Suspect]
     Route: 048
  4. EMTRICITABINE [Suspect]
     Route: 065

REACTIONS (1)
  - RESPIRATORY FAILURE [None]
